FAERS Safety Report 11574710 (Version 2)
Quarter: 2015Q4

REPORT INFORMATION
  Report Type: Spontaneous
  Country: US (occurrence: US)
  Receive Date: 20150930
  Receipt Date: 20151009
  Transmission Date: 20160304
  Serious: Yes (Other)
  Sender: FDA-Public Use
  Company Number: US-PFIZER INC-2015322175

PATIENT
  Age: 7 Year
  Sex: Male

DRUGS (1)
  1. XYNTHA [Suspect]
     Active Substance: ANTIHEMOPHILIC FACTOR, HUMAN RECOMBINANT RESIDUES 743-1636 DELETED
     Indication: FACTOR VIII DEFICIENCY
     Dosage: 750 IU, 2X/WEEK
     Dates: start: 20120718

REACTIONS (4)
  - Haemorrhage [Unknown]
  - Contusion [Unknown]
  - Haemarthrosis [Unknown]
  - Muscle spasms [Unknown]
